FAERS Safety Report 17762662 (Version 1)
Quarter: 2020Q2

REPORT INFORMATION
  Report Type: Spontaneous
  Country: US (occurrence: US)
  Receive Date: 20200508
  Receipt Date: 20200508
  Transmission Date: 20200714
  Serious: No
  Sender: FDA-Public Use
  Company Number: US-BAUSCH-BL-2020-011506

PATIENT
  Age: 59 Year
  Sex: Female

DRUGS (3)
  1. PROLENSA [Suspect]
     Active Substance: BROMFENAC SODIUM
     Indication: CORNEAL ABRASION
     Dosage: 1 DROP A DAY FOR A SCRATCHED CORNEA ON HER LEFT EYE
     Route: 047
     Dates: start: 20200410, end: 20200411
  2. PROLENSA [Suspect]
     Active Substance: BROMFENAC SODIUM
     Indication: PRODUCT USE IN UNAPPROVED INDICATION
  3. OLOPATADINE. [Concomitant]
     Active Substance: OLOPATADINE
     Indication: CORNEAL ABRASION
     Route: 047
     Dates: start: 20200409, end: 20200409

REACTIONS (3)
  - Vision blurred [Recovered/Resolved]
  - Drug ineffective for unapproved indication [Unknown]
  - Product use in unapproved indication [Unknown]

NARRATIVE: CASE EVENT DATE: 20200410
